FAERS Safety Report 5995588-3 (Version None)
Quarter: 2008Q4

REPORT INFORMATION
  Report Type: 
  Country: None (occurrence: None)
  Receive Date: 20081212
  Receipt Date: 20081006
  Transmission Date: 20090506
  Serious: Yes (Hospitalization)
  Sender: FDA-Public Use
  Company Number: US-ABBOTT-08P-163-0479305-00

PATIENT
  Sex: Female

DRUGS (11)
  1. HUMIRA [Suspect]
     Indication: RHEUMATOID ARTHRITIS
     Route: 058
     Dates: start: 20080901
  2. HUMIRA [Suspect]
     Indication: RHEUMATOID ARTHRITIS
     Route: 058
     Dates: start: 20070801, end: 20080401
  3. HUMIRA [Suspect]
     Route: 058
     Dates: end: 20080901
  4. OMEPRAZOLE MAGNESIUM [Concomitant]
     Indication: DUODENAL ULCER
     Route: 048
  5. MISOPROSTOL [Concomitant]
     Indication: DUODENAL ULCER
     Route: 048
  6. DICLOFENAC DIETHYLAMINE [Concomitant]
     Indication: ARTHRALGIA
     Route: 048
  7. CLONIDINE [Concomitant]
     Indication: HYPERTENSION
     Route: 048
  8. ATENOLOL [Concomitant]
     Indication: HYPERTENSION
     Route: 048
  9. PREDNISONE TAB [Concomitant]
     Indication: RHEUMATOID ARTHRITIS
     Route: 048
  10. CRANBERRY JUICE [Concomitant]
     Indication: PROPHYLAXIS
     Route: 048
  11. CRANBERRY JUICE [Concomitant]
     Indication: RENAL DISORDER

REACTIONS (3)
  - ACCIDENTAL EXPOSURE [None]
  - CELLULITIS [None]
  - INJECTION SITE IRRITATION [None]
